FAERS Safety Report 14819872 (Version 1)
Quarter: 2018Q2

REPORT INFORMATION
  Report Type: Spontaneous
  Country: US (occurrence: US)
  Receive Date: 20180417
  Receipt Date: 20180417
  Transmission Date: 20180711
  Serious: Yes (Hospitalization)
  Sender: FDA-Public Use
  Company Number: None

PATIENT
  Age: 72 Year
  Sex: Female
  Weight: 53.52 kg

DRUGS (15)
  1. CALCITRIOL (ROCALTROL) [Concomitant]
  2. CYANOCOBALAMIN. [Concomitant]
     Active Substance: CYANOCOBALAMIN
  3. LEVAQUIN [Concomitant]
     Active Substance: LEVOFLOXACIN
  4. MAGNESIUM OXIDE (MAGOX) [Concomitant]
  5. DALTEPARIN, PORCINE [Concomitant]
  6. LEVOTHYROXINE (SYNTHROID, LEVOTHROID) [Concomitant]
  7. METHYLPREDNISOLONE (MEDROL) [Concomitant]
  8. MYCOPHENOLATE (MYFORTIC) [Concomitant]
  9. TACROLIMUS (HECORIA) [Concomitant]
  10. CA CARB/VIT D3/MAG OX/ZN OXIDE [Concomitant]
  11. FLUDROCORTISONE (FLORINEF) [Concomitant]
  12. TEMAZEPAM (RESTORIL) [Concomitant]
  13. VORICONAZOLE (VFEND) [Concomitant]
  14. FRAGMIN [Suspect]
     Active Substance: DALTEPARIN SODIUM
     Indication: AXILLARY VEIN THROMBOSIS
     Route: 058
     Dates: start: 20170419
  15. ACYCLOVIR (ZOVIRAX) [Concomitant]

REACTIONS (5)
  - Erythema [None]
  - Bacteraemia [None]
  - Platelet count decreased [None]
  - Neutropenia [None]
  - Catheter site swelling [None]

NARRATIVE: CASE EVENT DATE: 20170429
